FAERS Safety Report 7735430-3 (Version None)
Quarter: 2011Q3

REPORT INFORMATION
  Report Type: 
  Country: None (occurrence: None)
  Receive Date: 20110907
  Receipt Date: 20110901
  Transmission Date: 20111222
  Serious: Yes (Other)
  Sender: FDA-Public Use
  Company Number: US-ABBOTT-11P-163-0851303-00

PATIENT
  Age: 58 Year
  Sex: Female

DRUGS (12)
  1. PROZAC [Concomitant]
     Indication: PRODUCT USED FOR UNKNOWN INDICATION
  2. CALCIUM CARBONATE [Concomitant]
     Indication: PRODUCT USED FOR UNKNOWN INDICATION
  3. VIT D [Concomitant]
     Indication: PRODUCT USED FOR UNKNOWN INDICATION
  4. AUGMENTIN '125' [Concomitant]
     Indication: SJOGREN'S SYNDROME
     Dosage: WHEN SYMPTOMS ARE PRESENT
  5. FIORICET [Concomitant]
     Indication: MIGRAINE
  6. HUMIRA [Suspect]
     Indication: RHEUMATOID ARTHRITIS
     Dates: start: 20110601
  7. PLAQUENIL [Concomitant]
     Indication: RHEUMATOID ARTHRITIS
  8. FOLIC ACID [Concomitant]
     Indication: PRODUCT USED FOR UNKNOWN INDICATION
  9. FLONASE [Concomitant]
     Indication: SJOGREN'S SYNDROME
  10. TRAZODONE HCL [Concomitant]
     Indication: INSOMNIA
     Dosage: ONE TO TWO TABS
  11. CYMBALTA [Concomitant]
     Indication: PRODUCT USED FOR UNKNOWN INDICATION
     Dates: end: 20110825
  12. METHOTREXATE [Concomitant]
     Indication: PRODUCT USED FOR UNKNOWN INDICATION
     Dosage: TWO TO FIVE MG, THREE TABS A WEEK

REACTIONS (9)
  - BONE PAIN [None]
  - CONTUSION [None]
  - INCREASED TENDENCY TO BRUISE [None]
  - CHEST DISCOMFORT [None]
  - BRONCHITIS [None]
  - PAIN [None]
  - DYSPNOEA [None]
  - INJECTION SITE HAEMATOMA [None]
  - COUGH [None]
